FAERS Safety Report 9903779 (Version 1)
Quarter: 2014Q1

REPORT INFORMATION
  Report Type: Spontaneous
  Country: CO (occurrence: CO)
  Receive Date: 20140218
  Receipt Date: 20140218
  Transmission Date: 20141002
  Serious: Yes (Other)
  Sender: FDA-Public Use
  Company Number: CO-PFIZER INC-2014041351

PATIENT
  Age: 88 Year
  Sex: Female

DRUGS (2)
  1. LIPITOR [Suspect]
     Indication: PROPHYLAXIS
     Dosage: 80 MG, ONCE DAILY
     Route: 048
     Dates: start: 2012, end: 2013
  2. LIPITOR [Suspect]
     Dosage: 20 MG, ONCE DAILY
     Route: 048
     Dates: start: 2013

REACTIONS (1)
  - Thrombosis [Unknown]
